FAERS Safety Report 5136494-6 (Version None)
Quarter: 2006Q4

REPORT INFORMATION
  Report Type: 
  Country: None (occurrence: None)
  Receive Date: 20061020
  Receipt Date: 20060928
  Transmission Date: 20070319
  Serious: Yes (Congenital Anomaly)
  Sender: FDA-Public Use
  Company Number: 2002-06-0451

PATIENT
  Sex: Male

DRUGS (4)
  1. CLARITIN [Suspect]
     Indication: ILL-DEFINED DISORDER
     Dosage: 10 MG; PO
     Route: 048
     Dates: end: 20010806
  2. BECLOMETHASONE DIPROPIONATE [Concomitant]
  3. ...................... [Concomitant]
  4. LEVOCABASTINE HCL [Concomitant]

REACTIONS (3)
  - DRUG EXPOSURE DURING PREGNANCY [None]
  - HYPOSPADIAS [None]
  - PREGNANCY [None]
